FAERS Safety Report 21673783 (Version 2)
Quarter: 2022Q4

REPORT INFORMATION
  Report Type: Report from Study
  Country: DE (occurrence: DE)
  Receive Date: 20221202
  Receipt Date: 20221227
  Transmission Date: 20230113
  Serious: Yes (Hospitalization)
  Sender: FDA-Public Use
  Company Number: DE-002147023-NVSC2022DE246905

PATIENT
  Age: 63 Year
  Sex: Male
  Weight: 80 kg

DRUGS (6)
  1. ISCALIMAB [Suspect]
     Active Substance: ISCALIMAB
     Indication: Liver transplant
     Dosage: 2247 MG, ONCE
     Route: 058
     Dates: start: 20200824
  2. ISCALIMAB [Suspect]
     Active Substance: ISCALIMAB
     Dosage: 1095 MG, ONCE
     Route: 058
     Dates: start: 20200831
  3. ISCALIMAB [Suspect]
     Active Substance: ISCALIMAB
     Dosage: 600 MG, Q2W (ONCE IN 2 WEEKS)
     Route: 058
     Dates: start: 20200914
  4. TACROLIMUS [Suspect]
     Active Substance: TACROLIMUS
     Indication: Liver transplant
     Dosage: 6 MILLIGRAM, 2 TIMES PER DAY
     Route: 048
     Dates: start: 20200824
  5. DICLOFENAC [Concomitant]
     Active Substance: DICLOFENAC
     Indication: Hyperuricaemia
     Dosage: UNK
     Route: 065
     Dates: start: 20210515
  6. MAGNESIUM [Concomitant]
     Active Substance: MAGNESIUM
     Indication: General physical condition
     Dosage: UNK
     Route: 065
     Dates: start: 20220607

REACTIONS (1)
  - Metastases to lung [Recovered/Resolved with Sequelae]

NARRATIVE: CASE EVENT DATE: 20220913
